FAERS Safety Report 8371228-3 (Version None)
Quarter: 2012Q2

REPORT INFORMATION
  Report Type: 
  Country: None (occurrence: None)
  Receive Date: 20120517
  Receipt Date: 20120507
  Transmission Date: 20120825
  Serious: Yes (Other)
  Sender: FDA-Public Use
  Company Number: AUR-APL-2012-02140

PATIENT
  Age: 92 Year
  Sex: Female

DRUGS (5)
  1. SIMVASTATIN [Concomitant]
  2. LOSARTAN POTASSIUM [Concomitant]
  3. ALENDRONIC ACID (ALENDRONIC ACID) [Suspect]
     Indication: OSTEOPOROSIS
     Dosage: (70 MG, 1 IN 1 WK), ORAL
     Route: 048
  4. HYDROCHLOROTHIAZIDE [Concomitant]
  5. AMLODIPINE [Concomitant]

REACTIONS (6)
  - OESOPHAGEAL IRRITATION [None]
  - DYSPEPSIA [None]
  - PRODUCT SOLUBILITY ABNORMAL [None]
  - DRUG PRESCRIBING ERROR [None]
  - FEELING ABNORMAL [None]
  - DYSPHAGIA [None]
